FAERS Safety Report 9514761 (Version 2)
Quarter: 2013Q3

REPORT INFORMATION
  Report Type: Spontaneous
  Country: US (occurrence: None)
  Receive Date: 20130819
  Receipt Date: 20130830
  Transmission Date: 20140515
  Serious: Yes (Hospitalization)
  Sender: FDA-Public Use
  Company Number: 2013PROUSA03064

PATIENT
  Age: 66 Year
  Sex: Male
  Weight: 89 kg

DRUGS (7)
  1. PROVENGE (SIPULEUCEL-T) SUSPENSION, 250ML [Suspect]
     Indication: PROSTATE CANCER METASTATIC
     Dosage: SINGLE
     Route: 042
     Dates: start: 20130426, end: 20130426
  2. OXYCODONE AND ACETAMINOPHEN (OXYCODONE HYDROCHLORIDE, PARACETAMOL) [Concomitant]
  3. IBUPROFEN (IBUPROFEN) [Concomitant]
  4. LUPRON DEPOT-3 MONTH (LEUPRORELIN ACETATE) [Concomitant]
  5. MEGACE (MEGESTROL ACETATE) [Concomitant]
  6. CITALOPRAM HYDROBROMIDE (CITALOPRAM HYDROBROMIDE) [Concomitant]
  7. DESMOPRESSIN ACETATE (DESMOPRESSIN ACETATE) [Concomitant]

REACTIONS (5)
  - Tachycardia [None]
  - Gait disturbance [None]
  - Dyspnoea [None]
  - Headache [None]
  - Acute myocardial infarction [None]
